FAERS Safety Report 11544075 (Version 2)
Quarter: 2016Q1

REPORT INFORMATION
  Report Type: Report from Study
  Country: US (occurrence: US)
  Receive Date: 20150924
  Receipt Date: 20160331
  Transmission Date: 20160525
  Serious: Yes (Death, Hospitalization, Other)
  Sender: FDA-Public Use
  Company Number: US-ALEXION-A201503560

PATIENT

DRUGS (1)
  1. SOLIRIS [Suspect]
     Active Substance: ECULIZUMAB
     Indication: PAROXYSMAL NOCTURNAL HAEMOGLOBINURIA
     Route: 042

REACTIONS (9)
  - Neutropenia [Unknown]
  - Pain in extremity [Unknown]
  - Sepsis [Unknown]
  - Malaise [Recovering/Resolving]
  - Platelet count decreased [Unknown]
  - Death [Fatal]
  - Productive cough [Recovered/Resolved]
  - Antibody test abnormal [Unknown]
  - Influenza like illness [Unknown]

NARRATIVE: CASE EVENT DATE: 201603
